FAERS Safety Report 20758197 (Version 1)
Quarter: 2022Q2

REPORT INFORMATION
  Report Type: Spontaneous
  Country: US (occurrence: US)
  Receive Date: 20220427
  Receipt Date: 20220427
  Transmission Date: 20220721
  Serious: No
  Sender: FDA-Public Use
  Company Number: US-MYLANLABS-2022M1027444

PATIENT
  Age: 44 Year
  Sex: Female
  Weight: 108.86 kg

DRUGS (6)
  1. ESTRADIOL TRANSDERMAL SYSTEM [Suspect]
     Active Substance: ESTRADIOL
     Indication: Oestrogen replacement therapy
     Dosage: 0.1 MILLIGRAM, QD (ONCE WEEKLY)
     Route: 062
     Dates: start: 202204
  2. ESTRADIOL TRANSDERMAL SYSTEM [Suspect]
     Active Substance: ESTRADIOL
     Indication: Hysterectomy
  3. ESTRADIOL TRANSDERMAL SYSTEM [Suspect]
     Active Substance: ESTRADIOL
     Indication: Oophorectomy
  4. TRAZODONE [Concomitant]
     Active Substance: TRAZODONE HYDROCHLORIDE
     Indication: Sleep disorder
     Dosage: 100 MILLIGRAM
  5. LISINOPRIL [Concomitant]
     Active Substance: LISINOPRIL
     Indication: Hypertension
     Dosage: 40 MILLIGRAM
  6. FAMOTIDINE [Concomitant]
     Active Substance: FAMOTIDINE
     Indication: Gastrooesophageal reflux disease
     Dosage: 40 MILLIGRAM

REACTIONS (3)
  - Application site pain [Unknown]
  - Product adhesion issue [Unknown]
  - Application site scab [Unknown]

NARRATIVE: CASE EVENT DATE: 20220401
